FAERS Safety Report 15090489 (Version 1)
Quarter: 2018Q2

REPORT INFORMATION
  Report Type: Spontaneous
  Country: US (occurrence: US)
  Receive Date: 20180629
  Receipt Date: 20180629
  Transmission Date: 20180711
  Serious: Yes (Other)
  Sender: FDA-Public Use
  Company Number: US-ASTELLAS-2018US028717

PATIENT
  Age: 43 Year
  Sex: Male

DRUGS (4)
  1. TACROLIMUS. [Suspect]
     Active Substance: TACROLIMUS
     Indication: PRODUCT USED FOR UNKNOWN INDICATION
     Dosage: UNK UNK, UNKNOWN FREQ.
     Route: 065
  2. ICLUSIG [Suspect]
     Active Substance: PONATINIB
     Route: 048
     Dates: start: 20180315
  3. BLINATUMOMAB [Suspect]
     Active Substance: BLINATUMOMAB
     Indication: ACUTE LYMPHOCYTIC LEUKAEMIA REFRACTORY
     Route: 065
     Dates: start: 20180426, end: 20180524
  4. ICLUSIG [Suspect]
     Active Substance: PONATINIB
     Indication: ACUTE LYMPHOCYTIC LEUKAEMIA
     Route: 048

REACTIONS (12)
  - Transaminases increased [Recovered/Resolved]
  - Hypertension [Recovering/Resolving]
  - Diarrhoea [Unknown]
  - Insomnia [Recovered/Resolved]
  - Pancytopenia [Unknown]
  - Toxicity to various agents [Unknown]
  - Hypomagnesaemia [Unknown]
  - Vitamin D deficiency [Unknown]
  - Mean cell volume increased [Unknown]
  - Pain [Recovered/Resolved]
  - Acute graft versus host disease in intestine [Recovered/Resolved]
  - Cough [Unknown]

NARRATIVE: CASE EVENT DATE: 20180330
